FAERS Safety Report 4604896-X (Version None)
Quarter: 2005Q1

REPORT INFORMATION
  Report Type: 
  Country: None (occurrence: None)
  Receive Date: 20050209
  Receipt Date: 20050209
  Transmission Date: 20050727
  Serious: Yes (Hospitalization)
  Sender: FDA-Public Use
  Company Number: None

PATIENT
  Sex: Male

DRUGS (1)
  1. ZOFRAN [Suspect]
     Indication: NAUSEA
     Dosage: 4 MG IV
     Route: 042

REACTIONS (5)
  - CHILLS [None]
  - EXTRAPYRAMIDAL DISORDER [None]
  - MUSCLE SPASMS [None]
  - PAIN [None]
  - POST PROCEDURAL COMPLICATION [None]
